FAERS Safety Report 4791246-1 (Version None)
Quarter: 2005Q4

REPORT INFORMATION
  Report Type: 
  Country: None (occurrence: None)
  Receive Date: 20051007
  Receipt Date: 20050929
  Transmission Date: 20060501
  Serious: Yes (Hospitalization)
  Sender: FDA-Public Use
  Company Number: US-ABBOTT-05P-163-0312422-00

PATIENT
  Sex: Female
  Weight: 49.032 kg

DRUGS (6)
  1. HUMIRA 40 MG/ 0.8 ML PRE-FILLED SYRINGE [Suspect]
     Indication: RHEUMATOID ARTHRITIS
     Route: 058
     Dates: start: 20040101
  2. PREDNISONE [Concomitant]
     Indication: DRUG USE FOR UNKNOWN INDICATION
     Route: 048
  3. GABAPENTIN [Concomitant]
     Indication: NEURALGIA
     Dosage: NOT REPORTED
     Route: 048
     Dates: start: 20050101
  4. ESTROGENS [Concomitant]
     Indication: DRUG USE FOR UNKNOWN INDICATION
     Dosage: NOT REPORTED
     Route: 048
  5. OXYCOCET [Concomitant]
     Indication: PAIN
     Dosage: NOT REPORTED
     Route: 048
     Dates: start: 20040901
  6. METHOTREXATE [Concomitant]
     Indication: DRUG USE FOR UNKNOWN INDICATION
     Dosage: EIGHT TABLETS WEEKLY
     Route: 048

REACTIONS (1)
  - WOUND INFECTION STAPHYLOCOCCAL [None]
